FAERS Safety Report 8293280-6 (Version None)
Quarter: 2012Q2

REPORT INFORMATION
  Report Type: 
  Country: None (occurrence: None)
  Receive Date: 20120417
  Receipt Date: 20110701
  Transmission Date: 20120825
  Serious: No
  Sender: FDA-Public Use
  Company Number: US-ASTRAZENECA-2011SE39744

PATIENT
  Sex: Female
  Weight: 72.6 kg

DRUGS (3)
  1. NEXIUM [Suspect]
     Indication: BARRETT'S OESOPHAGUS
     Route: 048
  2. NEXIUM [Suspect]
     Indication: OESOPHAGEAL ACHALASIA
     Route: 048
  3. NEXIUM [Suspect]
     Indication: GASTROOESOPHAGEAL REFLUX DISEASE
     Route: 048

REACTIONS (3)
  - OESOPHAGEAL OPERATION [None]
  - OESOPHAGEAL DILATION PROCEDURE [None]
  - PNEUMONIA [None]
